FAERS Safety Report 7758531-2 (Version None)
Quarter: 2011Q3

REPORT INFORMATION
  Report Type: 
  Country: None (occurrence: None)
  Receive Date: 20110825
  Receipt Date: 20110615
  Transmission Date: 20111222
  Serious: Yes (Hospitalization)
  Sender: FDA-Public Use
  Company Number: 329670

PATIENT
  Age: 37 Year
  Sex: Female
  Weight: 103.9 kg

DRUGS (2)
  1. VICTOZA [Suspect]
     Indication: TYPE 2 DIABETES MELLITUS
     Dosage: SUBCUTANEOUS
     Route: 058
     Dates: start: 20110114, end: 20110201
  2. VICTOZA [Suspect]
     Indication: WEIGHT CONTROL
     Dosage: SUBCUTANEOUS
     Route: 058
     Dates: start: 20110114, end: 20110201

REACTIONS (3)
  - PANCREATITIS [None]
  - BLOOD GLUCOSE DECREASED [None]
  - DEHYDRATION [None]
